FAERS Safety Report 7154242-5 (Version None)
Quarter: 2010Q4

REPORT INFORMATION
  Report Type: 
  Country: None (occurrence: None)
  Receive Date: 20101213
  Receipt Date: 20101207
  Transmission Date: 20110411
  Serious: Yes (Death)
  Sender: FDA-Public Use
  Company Number: US-AMGEN-USASP2010008145

PATIENT

DRUGS (3)
  1. NPLATE [Suspect]
     Indication: IDIOPATHIC THROMBOCYTOPENIC PURPURA
     Dosage: UNK
  2. CORTICOSTEROIDS [Concomitant]
     Dosage: UNK
     Dates: start: 20040703
  3. IMMUNOGLOBULINS [Concomitant]
     Dosage: UNK
     Dates: start: 20040703

REACTIONS (1)
  - SEPSIS [None]
